FAERS Safety Report 6997636-0 (Version None)
Quarter: 2010Q3

REPORT INFORMATION
  Report Type: 
  Country: None (occurrence: None)
  Receive Date: 20100918
  Receipt Date: 20091111
  Transmission Date: 20110219
  Serious: No
  Sender: FDA-Public Use
  Company Number: US-WYE-H12145409

PATIENT
  Sex: Female
  Weight: 76.73 kg

DRUGS (10)
  1. PRISTIQ [Suspect]
     Route: 048
     Dates: start: 20091028
  2. GLYBURIDE [Concomitant]
  3. PROPOXYPHENE HCL [Concomitant]
  4. IBUPROFEN [Concomitant]
  5. DICLOFENAC [Concomitant]
  6. LORATADINE [Concomitant]
  7. ASPIRIN [Concomitant]
  8. PREMPRO [Concomitant]
  9. GEMFIBROZIL [Concomitant]
  10. XANAX [Concomitant]

REACTIONS (8)
  - ANXIETY [None]
  - DIZZINESS [None]
  - DRY MOUTH [None]
  - FATIGUE [None]
  - HEADACHE [None]
  - IRRITABILITY [None]
  - NAUSEA [None]
  - NIGHTMARE [None]
